FAERS Safety Report 16448782 (Version 4)
Quarter: 2019Q3

REPORT INFORMATION
  Report Type: Spontaneous
  Country: NL (occurrence: NL)
  Receive Date: 20190619
  Receipt Date: 20190802
  Transmission Date: 20191004
  Serious: Yes (Life-Threatening, Hospitalization, Other)
  Sender: FDA-Public Use
  Company Number: NL-ACCORD-133428

PATIENT
  Age: 18 Year
  Sex: Male
  Weight: 97 kg

DRUGS (5)
  1. FOLINIC ACID [Concomitant]
     Active Substance: LEUCOVORIN
     Indication: PROPHYLAXIS
  2. CISPLATIN. [Suspect]
     Active Substance: CISPLATIN
     Indication: OSTEOSARCOMA
     Dosage: ON DAY 1-3, IN A 5- WEEKLY REGIMEN, 35 MG/M2-DAY 2-3, IN A 5- WEEKLY REGIMEN
     Route: 042
     Dates: start: 2018
  3. DOXORUBICIN [Suspect]
     Active Substance: DOXORUBICIN
     Indication: OSTEOSARCOMA
     Dosage: ON DAY 1-3, IN A 5- WEEKLY REGIMEN
     Dates: start: 2018
  4. PIPERACILLIN SODIUM/TAZOBACTAM SODIUM [Interacting]
     Active Substance: PIPERACILLIN SODIUM\TAZOBACTAM SODIUM
     Indication: PRODUCT USED FOR UNKNOWN INDICATION
  5. METHOTREXATE. [Suspect]
     Active Substance: METHOTREXATE
     Indication: OSTEOSARCOMA
     Dosage: 12 G/M2, IN 6 HOURS ON DAYS 21 AND 28
     Route: 042

REACTIONS (9)
  - Drug ineffective [Unknown]
  - Aspartate aminotransferase increased [Recovering/Resolving]
  - Renal impairment [Recovered/Resolved]
  - Off label use [Unknown]
  - Drug clearance decreased [Recovering/Resolving]
  - Drug level increased [Recovering/Resolving]
  - Mucosal inflammation [Recovering/Resolving]
  - Alanine aminotransferase increased [Recovering/Resolving]
  - Drug interaction [Unknown]
